FAERS Safety Report 23620524 (Version 2)
Quarter: 2024Q1

REPORT INFORMATION
  Report Type: Spontaneous
  Country: US (occurrence: US)
  Receive Date: 20240312
  Receipt Date: 20240318
  Transmission Date: 20240410
  Serious: No
  Sender: FDA-Public Use
  Company Number: US-Calliditas-2024CAL00366

PATIENT
  Age: 39 Year
  Sex: Female

DRUGS (1)
  1. TARPEYO [Suspect]
     Active Substance: BUDESONIDE
     Indication: IgA nephropathy
     Route: 048
     Dates: start: 20240216

REACTIONS (5)
  - Menstrual clots [Unknown]
  - Asthenia [Unknown]
  - Chest discomfort [Unknown]
  - Dyspnoea [Unknown]
  - Full blood count decreased [Unknown]
